FAERS Safety Report 19046846 (Version 1)
Quarter: 2021Q1

REPORT INFORMATION
  Report Type: Spontaneous
  Country: DE (occurrence: DE)
  Receive Date: 20210323
  Receipt Date: 20210323
  Transmission Date: 20210420
  Serious: Yes (Hospitalization)
  Sender: FDA-Public Use
  Company Number: DE-TORRENT-00019889

PATIENT
  Age: 6 Year
  Sex: Male
  Weight: 32 kg

DRUGS (3)
  1. RISPERIDONE. [Suspect]
     Active Substance: RISPERIDONE
     Indication: ACCIDENTAL EXPOSURE TO PRODUCT BY CHILD
     Dosage: DAILY DOSE: 1 MG MILLGRAM(S) EVERY TOTAL
     Route: 048
     Dates: start: 20181224, end: 20181224
  2. BOTOX [Concomitant]
     Active Substance: ONABOTULINUMTOXINA
     Indication: TORTICOLLIS
     Dosage: DAILY DOSE: 1 DF DOSAGE FORM EVERY 3 MONTHS
  3. GUANFACIN RETARD [Suspect]
     Active Substance: GUANFACINE HYDROCHLORIDE
     Indication: ACCIDENTAL EXPOSURE TO PRODUCT BY CHILD
     Dosage: DAILY DOSE: 1 MG MILLGRAM(S) EVERY TOTAL
     Route: 048
     Dates: start: 20181224, end: 20181224

REACTIONS (3)
  - Accidental exposure to product by child [Recovered/Resolved]
  - Product administration error [Recovered/Resolved]
  - No adverse event [Recovered/Resolved]

NARRATIVE: CASE EVENT DATE: 20181224
